FAERS Safety Report 23871324 (Version 2)
Quarter: 2024Q3

REPORT INFORMATION
  Report Type: Report from Study
  Country: CN (occurrence: CN)
  Receive Date: 20240519
  Receipt Date: 20240706
  Transmission Date: 20241017
  Serious: Yes (Other)
  Sender: AUROBINDO
  Company Number: CN-AUROBINDO-AUR-APL-2024-023440

PATIENT
  Age: 52 Year
  Sex: Female

DRUGS (23)
  1. LETROZOLE [Suspect]
     Active Substance: LETROZOLE
     Indication: HER2 positive breast cancer
     Dosage: 2.5 MILLIGRAM, ONCE A DAY
     Route: 065
     Dates: start: 20140611
  2. ANASTROZOLE [Suspect]
     Active Substance: ANASTROZOLE
     Indication: HER2 positive breast cancer
     Dosage: 1 MILLIGRAM, ONCE A DAY
     Route: 065
  3. AFATINIB [Suspect]
     Active Substance: AFATINIB
     Indication: HER2 positive breast cancer
     Dosage: UNK
     Route: 065
  4. CAPECITABINE [Suspect]
     Active Substance: CAPECITABINE
     Indication: HER2 positive breast cancer
     Dosage: 3.5 GRAM, ONCE A DAY (1.5 G IN THE MORNING AND 2 G IN THE EVENING, D1?14, OR CAPECITABINE 1.5 G, BID
     Route: 065
     Dates: start: 20150428, end: 20150603
  5. CISPLATIN [Suspect]
     Active Substance: CISPLATIN
     Indication: HER2 positive breast cancer
     Dosage: UNK
     Route: 065
  6. CYCLOPHOSPHAMIDE [Suspect]
     Active Substance: CYCLOPHOSPHAMIDE
     Indication: HER2 positive breast cancer
     Dosage: 500 MG/M2 (D1) (CHEMOTHERAPY FOR FOUR CYCLES)
     Route: 065
  7. INVESTIGATIONAL PRODUCT [Suspect]
     Active Substance: INVESTIGATIONAL PRODUCT
     Indication: HER2 positive breast cancer
     Dosage: 56.9 MG/44.93 MG/35.1 MG,
     Route: 042
  8. INVESTIGATIONAL PRODUCT [Suspect]
     Active Substance: INVESTIGATIONAL PRODUCT
     Dosage: 35.1 MG D1?5 (CHEMOTHERAPY WAS GIVEN 5TH, 6TH, 7TH, AND 8TH CYCLES.)
     Route: 042
     Dates: start: 20150722, end: 20150924
  9. DOCETAXEL [Suspect]
     Active Substance: DOCETAXEL\DOCETAXEL ANHYDROUS
     Indication: HER2 positive breast cancer
     Dosage: 130 MILLIGRAM DH REGIMEN (DOCETAXEL 130 MG D1, HERCEPTIN)
     Route: 065
     Dates: start: 20160524, end: 20161130
  10. EVEROLIMUS [Suspect]
     Active Substance: EVEROLIMUS
     Indication: HER2 positive breast cancer
     Dosage: UNK
     Route: 065
  11. EXEMESTANE [Suspect]
     Active Substance: EXEMESTANE
     Indication: HER2 positive breast cancer
     Dosage: 25 MILLIGRAM, ONCE A DAY
     Route: 065
     Dates: start: 20151215, end: 20160520
  12. FULVESTRANT [Suspect]
     Active Substance: FULVESTRANT
     Indication: HER2 positive breast cancer
     Dosage: UNK
     Route: 065
  13. GEMCITABINE [Suspect]
     Active Substance: GEMCITABINE
     Indication: HER2 positive breast cancer
     Dosage: NEEDLE (1.8 G D1, 8 + DDP 40 MG D1?2/50 MG D3)
     Route: 042
  14. HERCEPTIN [Suspect]
     Active Substance: TRASTUZUMAB
     Indication: HER2 positive breast cancer
     Dosage: 6 MILLIGRAM/KILOGRAM, ONCE IN 3 WEEKS
     Route: 065
     Dates: end: 20170223
  15. HERCEPTIN [Suspect]
     Active Substance: TRASTUZUMAB
     Dosage: UNK NH (NVB 47 MG D1, 8, HERCEPTIN) FOR THREE CYCLES
     Route: 065
     Dates: start: 20170315, end: 20170503
  16. LAPATINIB [Suspect]
     Active Substance: LAPATINIB
     Indication: HER2 positive breast cancer
     Dosage: UNK
     Route: 065
  17. NIVOLUMAB [Suspect]
     Active Substance: NIVOLUMAB
     Indication: HER2 positive breast cancer
     Dosage: UNK
     Route: 065
  18. PIRARUBICIN [Suspect]
     Active Substance: PIRARUBICIN
     Indication: HER2 positive breast cancer
     Dosage: 60 MG/M2 (D1 Q3W)
     Route: 065
  19. RIVOCERANIB [Suspect]
     Active Substance: RIVOCERANIB
     Indication: HER2 positive breast cancer
     Dosage: 250 MILLIGRAM, ONCE A DAY
     Route: 065
     Dates: start: 20170517
  20. RIVOCERANIB [Suspect]
     Active Substance: RIVOCERANIB
     Dosage: 250 MILLIGRAM, ONCE A DAY
     Route: 065
     Dates: start: 20190530, end: 20190910
  21. TAMOXIFEN [Suspect]
     Active Substance: TAMOXIFEN
     Indication: HER2 positive breast cancer
     Dosage: 10 MILLIGRAM, TWO TIMES A DAY
     Route: 065
     Dates: start: 20100820, end: 20110727
  22. TAXOL [Suspect]
     Active Substance: PACLITAXEL
     Indication: HER2 positive breast cancer
     Dosage: 175 MG/M2 D1, ONCE EVERY 2 WEEKS
     Route: 065
  23. VINORELBINE [Suspect]
     Active Substance: VINORELBINE TARTRATE
     Indication: HER2 positive breast cancer
     Dosage: UNK
     Route: 065

REACTIONS (1)
  - Drug ineffective [Unknown]
